FAERS Safety Report 13043348 (Version 1)
Quarter: 2016Q4

REPORT INFORMATION
  Report Type: Spontaneous
  Country: US (occurrence: US)
  Receive Date: 20161220
  Receipt Date: 20161220
  Transmission Date: 20170207
  Serious: No
  Sender: FDA-Public Use
  Company Number: US-BAUSCH-BL-2015-030705

PATIENT
  Age: 47 Year
  Sex: Female
  Weight: 54.48 kg

DRUGS (2)
  1. ZIANA [Suspect]
     Active Substance: CLINDAMYCIN PHOSPHATE\TRETINOIN
     Indication: DERMATITIS
     Dosage: APPLIED TO BUMPS AND SPOTS ON FACE DAILY
     Route: 061
     Dates: start: 201509, end: 201510
  2. DOXYCYCLINE. [Concomitant]
     Active Substance: DOXYCYCLINE
     Indication: DERMATITIS
     Route: 048

REACTIONS (6)
  - Dry skin [Recovering/Resolving]
  - Pruritus [Recovering/Resolving]
  - Drug ineffective for unapproved indication [Unknown]
  - Burning sensation [Recovering/Resolving]
  - Erythema [Recovering/Resolving]
  - Skin irritation [Recovering/Resolving]

NARRATIVE: CASE EVENT DATE: 2015
